FAERS Safety Report 23762407 (Version 1)
Quarter: 2024Q2

REPORT INFORMATION
  Report Type: Spontaneous
  Country: KR (occurrence: KR)
  Receive Date: 20240419
  Receipt Date: 20240419
  Transmission Date: 20240715
  Serious: Yes (Life-Threatening, Other)
  Sender: FDA-Public Use
  Company Number: KR-TAKEDA-2024TUS035406

PATIENT
  Sex: Female
  Weight: 63.5 kg

DRUGS (1)
  1. PANTOPRAZOLE SODIUM [Suspect]
     Active Substance: PANTOPRAZOLE SODIUM
     Indication: Uterine leiomyoma
     Dosage: 40 MILLIGRAM, QD (POWDER FOR SOLUTION FOR INJECTION)
     Route: 065
     Dates: start: 20221027, end: 20221027

REACTIONS (2)
  - Seizure [Recovered/Resolved]
  - Off label use [Unknown]

NARRATIVE: CASE EVENT DATE: 20221027
